FAERS Safety Report 10668735 (Version 2)
Quarter: 2014Q4

REPORT INFORMATION
  Report Type: Spontaneous
  Country: US (occurrence: US)
  Receive Date: 20141222
  Receipt Date: 20141231
  Transmission Date: 20150529
  Serious: No
  Sender: FDA-Public Use
  Company Number: US-PFIZER INC-2014350140

PATIENT
  Age: 69 Year
  Sex: Male
  Weight: 76 kg

DRUGS (2)
  1. GEODON [Suspect]
     Active Substance: ZIPRASIDONE HYDROCHLORIDE\ZIPRASIDONE MESYLATE
     Indication: PALPITATIONS
     Dosage: 80 MG IN MORNING AND 40 MG AT 18:00
     Route: 048
     Dates: start: 20141017
  2. LEBLON [Concomitant]
     Indication: DIABETES MELLITUS
     Dosage: 35 MG AT NIGHT AND 5 MG IN MORNING

REACTIONS (1)
  - Dysphagia [Unknown]

NARRATIVE: CASE EVENT DATE: 2014
